FAERS Safety Report 8668278 (Version 2)
Quarter: 2014Q1

REPORT INFORMATION
  Report Type: Spontaneous
  Country: GB (occurrence: GB)
  Receive Date: 20120717
  Receipt Date: 20140310
  Transmission Date: 20141002
  Serious: Yes (Hospitalization)
  Sender: FDA-Public Use
  Company Number: GB-ROCHE-1085940

PATIENT
  Sex: Female

DRUGS (1)
  1. NUTROPIN AQ [Suspect]
     Indication: BRAIN NEOPLASM
     Dosage: FORM STRENGTH: 10 MG/ 2 ML
     Route: 065
     Dates: start: 2012

REACTIONS (9)
  - Carbon monoxide poisoning [Unknown]
  - Lethargy [Recovered/Resolved]
  - Fatigue [Recovered/Resolved]
  - Cough [Unknown]
  - Influenza [Unknown]
  - Headache [Unknown]
  - Neck pain [Unknown]
  - Drug dose omission [Unknown]
  - Off label use [Unknown]
